FAERS Safety Report 4850204-9 (Version None)
Quarter: 2005Q4

REPORT INFORMATION
  Report Type: 
  Country: None (occurrence: None)
  Receive Date: 20051123
  Receipt Date: 20051006
  Transmission Date: 20060501
  Serious: No
  Sender: FDA-Public Use
  Company Number: 218396

PATIENT
  Age: 35 Year
  Sex: Female

DRUGS (5)
  1. RAPTIVA [Suspect]
     Indication: PSORIASIS
     Dosage: 0.86 ML, 1/WEEK, SUBCUTANEOUS
     Route: 058
     Dates: start: 20050901
  2. BENADRYL [Concomitant]
  3. MOTRIN [Concomitant]
  4. ICE COMPRESSES (COLD THERAPY) [Concomitant]
  5. BLOOD PRESSURE MEDICATION NOS (ANTIHYPERTENSIVE NOS) [Concomitant]

REACTIONS (1)
  - INJECTION SITE IRRITATION [None]
